FAERS Safety Report 5375707-2 (Version None)
Quarter: 2007Q2

REPORT INFORMATION
  Report Type: 
  Country: None (occurrence: None)
  Receive Date: 20070629
  Receipt Date: 20070618
  Transmission Date: 20071010
  Serious: Yes (Hospitalization)
  Sender: FDA-Public Use
  Company Number: DE-GENENTECH-243734

PATIENT
  Sex: Female
  Weight: 68 kg

DRUGS (7)
  1. TRASTUZUMAB [Suspect]
     Indication: BREAST CANCER
     Dosage: 408 MG, Q3W
     Route: 042
     Dates: start: 20060918
  2. CAPECITABINE [Suspect]
     Indication: BREAST CANCER
     Dosage: 3240 MG, UNK
     Route: 048
     Dates: start: 20061208
  3. DOCETAXEL [Suspect]
     Indication: BREAST CANCER
     Dosage: 134 MG, Q3W
     Route: 042
     Dates: start: 20061208
  4. EPIRUBICIN [Suspect]
     Indication: BREAST CANCER
     Dosage: 90 MG/M2, Q3W
  5. CYCLOPHOSPHAMIDE [Suspect]
     Indication: BREAST CANCER
     Dosage: 600 MG/M2, Q3W
  6. BISOPROLOL [Concomitant]
     Indication: DRUG USE FOR UNKNOWN INDICATION
  7. CIPROFLOXACIN [Suspect]
     Indication: URINARY TRACT INFECTION
     Dosage: 250 MG, QD

REACTIONS (1)
  - CHEST PAIN [None]
